FAERS Safety Report 16814597 (Version 1)
Quarter: 2019Q3

REPORT INFORMATION
  Report Type: Spontaneous
  Country: US (occurrence: US)
  Receive Date: 20190725
  Receipt Date: 20190725
  Transmission Date: 20191005
  Serious: Yes (Hospitalization)
  Sender: FDA-Public Use
  Company Number: None

PATIENT
  Age: 96 Year
  Sex: Male

DRUGS (2)
  1. CEFEPIME [Suspect]
     Active Substance: CEFEPIME HYDROCHLORIDE
     Indication: SEPSIS
     Dates: start: 20190711, end: 20190713
  2. VANCOMYCIN [Suspect]
     Active Substance: VANCOMYCIN
     Indication: SEPSIS
     Dates: start: 20190711, end: 20190713

REACTIONS (6)
  - Toxic epidermal necrolysis [None]
  - Blister [None]
  - Anaphylactic reaction [None]
  - Stevens-Johnson syndrome [None]
  - Skin exfoliation [None]
  - Rash [None]

NARRATIVE: CASE EVENT DATE: 20190714
